FAERS Safety Report 16773366 (Version 1)
Quarter: 2019Q3

REPORT INFORMATION
  Report Type: Spontaneous
  Country: US (occurrence: US)
  Receive Date: 20190904
  Receipt Date: 20190904
  Transmission Date: 20191005
  Serious: Yes (Other)
  Sender: FDA-Public Use
  Company Number: US-PURDUE-USA-2019-0145996

PATIENT
  Sex: Male
  Weight: 72.57 kg

DRUGS (1)
  1. OXYCODONE/ ACETAMINOPHEN TABLETS [Suspect]
     Active Substance: ACETAMINOPHEN\OXYCODONE HYDROCHLORIDE
     Indication: NEURALGIA
     Dosage: 1 TABLET (10/325 MG), Q6H
     Route: 048

REACTIONS (3)
  - Speech disorder [Recovered/Resolved]
  - Impaired driving ability [Recovered/Resolved]
  - Drug dependence [Recovered/Resolved]
